FAERS Safety Report 8698555 (Version 7)
Quarter: 2018Q4

REPORT INFORMATION
  Report Type: Spontaneous
  Country: FR (occurrence: FR)
  Receive Date: 20120802
  Receipt Date: 20181116
  Transmission Date: 20190205
  Serious: Yes (Hospitalization, Other)
  Sender: FDA-Public Use
  Company Number: FR-PFIZER INC-2012178860

PATIENT
  Age: 46 Year
  Sex: Male
  Weight: 81.9 kg

DRUGS (18)
  1. TRIATEC (RAMIPRIL) [Suspect]
     Active Substance: RAMIPRIL
     Indication: HYPERTENSION
     Dosage: 1 DF, 1X/DAY
     Route: 048
     Dates: end: 20110310
  2. VALSARTAN + HIDROCLOROTIAZIDA ZENTIVA [Suspect]
     Active Substance: HYDROCHLOROTHIAZIDE\VALSARTAN
     Indication: HYPERTENSION
     Dosage: 1 DF, DAILY
     Route: 048
     Dates: end: 20110310
  3. DIAMICRON [Concomitant]
     Active Substance: GLICLAZIDE
     Dosage: UNK
  4. TRIATEC (RAMIPRIL) [Suspect]
     Active Substance: RAMIPRIL
     Dosage: 2.5 MG, DAILY
     Route: 048
  5. TRIATEC (RAMIPRIL) [Suspect]
     Active Substance: RAMIPRIL
     Dosage: 1 DF, DAILY
     Route: 048
  6. PAROXETINE HYDROCHLORIDE. [Suspect]
     Active Substance: PAROXETINE HYDROCHLORIDE
     Dosage: 2 DF, DAILY
     Route: 048
  7. ESIDREX [Suspect]
     Active Substance: HYDROCHLOROTHIAZIDE
     Dosage: 1 DF, DAILY
     Route: 048
  8. VALSARTAN + HIDROCLOROTIAZIDA ZENTIVA [Suspect]
     Active Substance: HYDROCHLOROTHIAZIDE\VALSARTAN
     Dosage: 1 DF, DAILY
     Route: 048
  9. KARDEGIC [Concomitant]
     Active Substance: ASPIRIN DL-LYSINE
     Dosage: UNK
  10. EUPANTOL [Concomitant]
     Active Substance: PANTOPRAZOLE SODIUM
     Dosage: UNK
  11. LIPANTHYL [Concomitant]
     Active Substance: FENOFIBRATE
     Dosage: UNK
  12. PAROXETINE HYDROCHLORIDE. [Suspect]
     Active Substance: PAROXETINE HYDROCHLORIDE
     Dosage: 40 MG, DAILY
     Route: 048
     Dates: end: 20110311
  13. METFORMIN [Concomitant]
     Active Substance: METFORMIN HYDROCHLORIDE
     Dosage: UNK
  14. GAVISCON [SODIUM ALGINATE;SODIUM BICARBONATE] [Concomitant]
     Dosage: UNK
  15. VALSARTAN + HIDROCLOROTIAZIDA ZENTIVA [Suspect]
     Active Substance: HYDROCHLOROTHIAZIDE\VALSARTAN
     Dosage: 1 DF, DAILY
     Route: 048
  16. LYSANXIA [Concomitant]
     Active Substance: PRAZEPAM
     Dosage: UNK
  17. MAGNESIUM ALGINATE/SODIUM ALGINATE [Concomitant]
     Dosage: UNK
  18. ESIDREX [Suspect]
     Active Substance: HYDROCHLOROTHIAZIDE
     Indication: HYPERTENSION
     Dosage: 25 MG, DAILY
     Route: 048

REACTIONS (7)
  - Diarrhoea [Unknown]
  - Acute kidney injury [Recovered/Resolved]
  - Hyponatraemia [Recovered/Resolved]
  - Dehydration [Unknown]
  - Decreased appetite [Unknown]
  - Mucosal dryness [Unknown]
  - Malaise [Unknown]

NARRATIVE: CASE EVENT DATE: 201103
